FAERS Safety Report 8879794 (Version 2)
Quarter: 2012Q4

REPORT INFORMATION
  Report Type: Report from Study
  Country: JP (occurrence: JP)
  Receive Date: 20121101
  Receipt Date: 20121213
  Transmission Date: 20130627
  Serious: Yes (Other)
  Sender: FDA-Public Use
  Company Number: JP-VERTEX PHARMACEUTICAL INC.-2012-023814

PATIENT
  Age: 69 Year
  Sex: Male

DRUGS (12)
  1. VX-950 (TELAPREVIR) [Suspect]
     Indication: CHRONIC HEPATITIS C
     Dosage: 1500 mg, qd
     Route: 048
     Dates: start: 20120821
  2. VX-950 (TELAPREVIR) [Suspect]
     Dosage: 1000 mg, qd
     Route: 048
     Dates: start: 20120925, end: 20121009
  3. VX-950 (TELAPREVIR) [Suspect]
     Dosage: 750 mg, qd
     Route: 048
     Dates: start: 20121010, end: 20121016
  4. VX-950 (TELAPREVIR) [Suspect]
     Dosage: 500 mg, qd
     Route: 048
     Dates: start: 20121017, end: 20121113
  5. RIBAVIRIN [Suspect]
     Indication: CHRONIC HEPATITIS C
     Dosage: 800 mg, qd
     Route: 048
     Dates: start: 20120821, end: 20120925
  6. RIBAVIRIN [Suspect]
     Dosage: 600 mg, qd
     Route: 048
     Dates: start: 20120925, end: 20121009
  7. RIBAVIRIN [Suspect]
     Dosage: 400 mg, qd
     Route: 048
     Dates: start: 20121010
  8. PEGINTERFERON ALFA-2B [Suspect]
     Indication: CHRONIC HEPATITIS C
     Dosage: 1.5 ?g/kg, qw
     Route: 058
     Dates: start: 20120821
  9. PEGINTERFERON ALFA-2B [Suspect]
     Dosage: UNK, qw
     Route: 058
  10. RISPERDAL [Concomitant]
     Dosage: 1 mg, qd
     Route: 048
  11. DORAL [Concomitant]
     Dosage: 15 mg, qd
     Route: 048
  12. SEROQUEL [Concomitant]
     Dosage: 100 mg, qd
     Route: 048

REACTIONS (2)
  - White blood cell count decreased [Recovered/Resolved]
  - Anaemia [Not Recovered/Not Resolved]
